FAERS Safety Report 5606418-3 (Version None)
Quarter: 2008Q1

REPORT INFORMATION
  Report Type: 
  Country: None (occurrence: None)
  Receive Date: 20080129
  Receipt Date: 20071011
  Transmission Date: 20080703
  Serious: No
  Sender: FDA-Public Use
  Company Number: A0687187A

PATIENT
  Age: 54 Year
  Sex: Male

DRUGS (3)
  1. WELLBUTRIN [Suspect]
     Indication: DEPRESSION
     Dosage: 100MG TWICE PER DAY
     Route: 048
     Dates: start: 20070901
  2. PROVIGIL [Concomitant]
  3. LITHIUM CARBONATE [Concomitant]

REACTIONS (2)
  - FATIGUE [None]
  - INSOMNIA [None]
